FAERS Safety Report 8326512-6 (Version None)
Quarter: 2012Q2

REPORT INFORMATION
  Report Type: 
  Country: None (occurrence: None)
  Receive Date: 20120501
  Receipt Date: 20090730
  Transmission Date: 20120825
  Serious: No
  Sender: FDA-Public Use
  Company Number: US-TEVA-2009009078

PATIENT
  Sex: Female
  Weight: 103.51 kg

DRUGS (12)
  1. REQUIP [Concomitant]
     Indication: RESTLESS LEGS SYNDROME
     Dates: start: 20081201
  2. PLAQUENIL [Concomitant]
     Indication: SERONEGATIVE ARTHRITIS
     Dates: start: 20081201
  3. FLEXERIL [Concomitant]
     Dates: start: 20040101
  4. VITAMIN B-12 [Concomitant]
     Indication: PERNICIOUS ANAEMIA
     Dates: start: 20010101
  5. SULINDAC [Concomitant]
     Dates: start: 20090726
  6. IMITREX [Concomitant]
     Indication: MIGRAINE
     Dates: start: 20081201
  7. MULTI-VITAMIN [Concomitant]
     Dates: start: 20010101
  8. TRAMADOL HCL [Concomitant]
     Dates: start: 20081201
  9. ZITHROMAX [Concomitant]
     Dates: start: 20081201
  10. CYMBALTA [Concomitant]
     Dates: start: 20060601
  11. NUVIGIL [Suspect]
     Indication: FATIGUE
     Dosage: 150 MILLIGRAM;
     Route: 002
     Dates: start: 20090729
  12. MEDROL [Concomitant]
     Indication: BURSITIS
     Dates: start: 20090729

REACTIONS (1)
  - HEADACHE [None]
